FAERS Safety Report 16675697 (Version 2)
Quarter: 2019Q4

REPORT INFORMATION
  Report Type: Report from Study
  Country: BR (occurrence: BR)
  Receive Date: 20190806
  Receipt Date: 20191002
  Transmission Date: 20200122
  Serious: Yes (Hospitalization)
  Sender: FDA-Public Use
  Company Number: BR-BIOGEN-2019BI00771289

PATIENT
  Sex: Female
  Weight: 70 kg

DRUGS (2)
  1. LABIRIN [Suspect]
     Active Substance: BETAHISTINE
     Indication: LABYRINTHITIS
     Route: 065
  2. AVONEX [Suspect]
     Active Substance: INTERFERON BETA-1A
     Indication: MULTIPLE SCLEROSIS
     Route: 030
     Dates: start: 2003, end: 201812

REACTIONS (7)
  - Influenza like illness [Unknown]
  - Anaemia [Recovered/Resolved]
  - Vomiting [Unknown]
  - Multiple sclerosis relapse [Recovered/Resolved]
  - Pyrexia [Unknown]
  - Pain [Unknown]
  - Swelling [Unknown]

NARRATIVE: CASE EVENT DATE: 2018
